FAERS Safety Report 8661429 (Version 3)
Quarter: 2012Q4

REPORT INFORMATION
  Report Type: 
  Country: DE (occurrence: JP)
  Receive Date: 20120712
  Receipt Date: 20120918
  Transmission Date: 20130627
  Serious: Yes (Hospitalization)
  Sender: FDA-Public Use
  Company Number: JP-FRI-1000036896

PATIENT
  Age: 75 Year
  Sex: Male
  Weight: 60 kg

DRUGS (14)
  1. MEMANTINE [Suspect]
     Indication: DEMENTIA
     Dosage: 5 mg
     Route: 048
     Dates: start: 20120502, end: 20120508
  2. MEMANTINE [Suspect]
     Indication: BEHAVIOURAL AND PSYCHIATRIC SYMPTOMS OF DEMENTIA
  3. MEMANTINE [Suspect]
     Indication: DEMENTIA
     Dosage: 10 mg
     Route: 048
     Dates: start: 20120509, end: 20120531
  4. MEMANTINE [Suspect]
     Indication: BEHAVIOURAL AND PSYCHIATRIC SYMPTOMS OF DEMENTIA
  5. YOKUKANSANKACHIMPIHANGE [Concomitant]
     Indication: BEHAVIOURAL AND PSYCHIATRIC SYMPTOMS OF DEMENTIA
     Dosage: 22.5 g
     Route: 048
     Dates: start: 20090630
  6. RISPERDAL [Concomitant]
     Indication: BEHAVIOURAL AND PSYCHIATRIC SYMPTOMS OF DEMENTIA
     Dosage: 0.5 mg
     Route: 048
     Dates: start: 20120510
  7. PRIMPERAN [Concomitant]
     Indication: GASTRITIS
     Dosage: 45 mg
     Route: 048
     Dates: start: 20090619
  8. DEPAKENE [Concomitant]
     Indication: EPILEPSY
     Dosage: 2700 mg
     Route: 048
     Dates: start: 20120328
  9. MYSLEE [Concomitant]
     Indication: INSOMNIA
     Dosage: 10 mg
     Route: 048
     Dates: start: 20120418
  10. MICARDIS [Concomitant]
     Indication: HYPERTENSION
     Dosage: 40 mg
     Route: 048
     Dates: start: 20111004
  11. GASTER [Concomitant]
     Indication: GASTRITIS
     Dosage: 20 mg
     Route: 048
     Dates: start: 20090627
  12. NORVASC [Concomitant]
     Indication: HYPERTENSION
     Dosage: 2.5 mg
     Route: 048
     Dates: start: 20111004
  13. MEROPENEM [Concomitant]
     Dosage: 1 gram
     Route: 042
     Dates: start: 20120523, end: 20120528
  14. FINIBAX [Concomitant]
     Dosage: 0.75 gram
     Route: 042
     Dates: start: 20120529

REACTIONS (2)
  - Pyrexia [Recovered/Resolved]
  - Lymphocyte stimulation test positive [None]
